FAERS Safety Report 18746152 (Version 1)
Quarter: 2021Q1

REPORT INFORMATION
  Report Type: Spontaneous
  Country: US (occurrence: US)
  Receive Date: 20210115
  Receipt Date: 20210115
  Transmission Date: 20210419
  Serious: Yes (Hospitalization)
  Sender: FDA-Public Use
  Company Number: None

PATIENT
  Age: 64 Year
  Sex: Male

DRUGS (2)
  1. ENBREL [Suspect]
     Active Substance: ETANERCEPT
     Indication: RHEUMATOID ARTHRITIS
     Dosage: ?          OTHER FREQUENCY:ONCE WEEKLY;?
     Route: 058
     Dates: start: 20200220
  2. ENBREL [Concomitant]
     Active Substance: ETANERCEPT

REACTIONS (8)
  - Procedural pain [None]
  - Arthralgia [None]
  - Intentional dose omission [None]
  - Swelling [None]
  - Loss of personal independence in daily activities [None]
  - Hypoaesthesia [None]
  - Pain in extremity [None]
  - Condition aggravated [None]

NARRATIVE: CASE EVENT DATE: 20201231
